FAERS Safety Report 9392844 (Version 2)
Quarter: 2013Q3

REPORT INFORMATION
  Report Type: Spontaneous
  Country: CO (occurrence: CO)
  Receive Date: 20130710
  Receipt Date: 20130715
  Transmission Date: 20140515
  Serious: Yes (Hospitalization, Other)
  Sender: FDA-Public Use
  Company Number: PHHY2013CO071861

PATIENT
  Age: 81 Year
  Sex: Male
  Weight: 58 kg

DRUGS (4)
  1. STALEVO [Suspect]
     Indication: PARKINSON^S DISEASE
     Dosage: 100 MG, BID
     Route: 048
     Dates: start: 2012
  2. EUTIROX [Concomitant]
     Indication: HYPOTHYROIDISM
     Dosage: UNK UKN, UNK
  3. BETALOC [Concomitant]
     Indication: CARDIOVASCULAR EVENT PROPHYLAXIS
     Dosage: UNK UKN, UNK
  4. AVODART [Concomitant]
     Indication: BENIGN PROSTATIC HYPERPLASIA
     Dosage: UNK UKN, UNK

REACTIONS (2)
  - Malnutrition [Recovered/Resolved]
  - Pneumonia [Recovered/Resolved]
